FAERS Safety Report 15392093 (Version 1)
Quarter: 2018Q3

REPORT INFORMATION
  Report Type: Spontaneous
  Country: US (occurrence: US)
  Receive Date: 20180917
  Receipt Date: 20180917
  Transmission Date: 20181010
  Serious: No
  Sender: FDA-Public Use
  Company Number: US-PFIZER INC-2018372958

PATIENT
  Age: 75 Year
  Sex: Male
  Weight: 68.93 kg

DRUGS (5)
  1. TYVASO [Suspect]
     Active Substance: TREPROSTINIL
     Dosage: UNK (5 BREATHS DOSE)
     Route: 055
     Dates: start: 20180827
  2. SILDENAFIL CITRATE. [Suspect]
     Active Substance: SILDENAFIL CITRATE
     Dosage: UNK
  3. SILDENAFIL CITRATE. [Suspect]
     Active Substance: SILDENAFIL CITRATE
     Dosage: UNK
     Dates: start: 20180827
  4. TYVASO [Suspect]
     Active Substance: TREPROSTINIL
     Indication: PULMONARY ARTERIAL HYPERTENSION
     Dosage: UNK, 4X/DAY (18?54 MICROGRAMS (3?9 BREATHS))
     Route: 055
     Dates: start: 20180809
  5. TYVASO [Suspect]
     Active Substance: TREPROSTINIL
     Dosage: 30 UG, UNK
     Route: 055

REACTIONS (5)
  - Blood pressure systolic decreased [Unknown]
  - Asthenia [Unknown]
  - Vision blurred [Unknown]
  - Somnolence [Unknown]
  - Blood pressure decreased [Unknown]

NARRATIVE: CASE EVENT DATE: 201808
